FAERS Safety Report 17103634 (Version 5)
Quarter: 2020Q1

REPORT INFORMATION
  Report Type: Spontaneous
  Country: US (occurrence: US)
  Receive Date: 20191203
  Receipt Date: 20200109
  Transmission Date: 20200409
  Serious: No
  Sender: FDA-Public Use
  Company Number: US-UNITED THERAPEUTICS-UNT-2019-019396

PATIENT
  Sex: Female
  Weight: 62.59 kg

DRUGS (7)
  1. TYVASO [Suspect]
     Active Substance: TREPROSTINIL
     Indication: PULMONARY ARTERIAL HYPERTENSION
     Dosage: 18-54 ?G, QID
     Dates: start: 20191114
  2. TYVASO [Suspect]
     Active Substance: TREPROSTINIL
     Dosage: 24 ?G, UNK
     Dates: start: 201911
  3. TYVASO [Suspect]
     Active Substance: TREPROSTINIL
     Dosage: 36 ?G, UNK
     Dates: start: 20191125
  4. TYVASO [Suspect]
     Active Substance: TREPROSTINIL
     Dosage: UNK
  5. NIFEDIPINE. [Concomitant]
     Active Substance: NIFEDIPINE
     Indication: PRODUCT USED FOR UNKNOWN INDICATION
     Dosage: UNK
     Route: 065
  6. LETAIRIS [Concomitant]
     Active Substance: AMBRISENTAN
     Indication: PRODUCT USED FOR UNKNOWN INDICATION
     Dosage: UNK
     Route: 065
  7. TADALAFIL. [Concomitant]
     Active Substance: TADALAFIL
     Indication: PRODUCT USED FOR UNKNOWN INDICATION
     Dosage: UNK
     Route: 065

REACTIONS (10)
  - Respiratory disorder [Not Recovered/Not Resolved]
  - Respiratory tract irritation [Recovered/Resolved]
  - Chest discomfort [Unknown]
  - Headache [Not Recovered/Not Resolved]
  - Cough [Not Recovered/Not Resolved]
  - Oxygen saturation decreased [Unknown]
  - Dyspnoea [Recovered/Resolved]
  - Product use issue [Unknown]
  - Nasal congestion [Unknown]
  - Diarrhoea [Recovered/Resolved]

NARRATIVE: CASE EVENT DATE: 2019
